FAERS Safety Report 16195519 (Version 1)
Quarter: 2019Q2

REPORT INFORMATION
  Report Type: Report from Study
  Country: US (occurrence: US)
  Receive Date: 20190415
  Receipt Date: 20190415
  Transmission Date: 20190711
  Serious: Yes (Other)
  Sender: FDA-Public Use
  Company Number: US-ROCHE-2297960

PATIENT
  Age: 67 Year
  Sex: Male
  Weight: 82.7 kg

DRUGS (8)
  1. BEVACIZUMAB. [Suspect]
     Active Substance: BEVACIZUMAB
     Indication: COLORECTAL CANCER METASTATIC
     Dosage: OVER 30-90 MINUTES ON DAY 1
     Route: 042
     Dates: start: 20171108
  2. IRINOTECAN [Concomitant]
     Active Substance: IRINOTECAN
     Dosage: AS A PART OF FOLFIRI PRIOR THERAPY
     Route: 065
     Dates: start: 20170427, end: 20170829
  3. 5-FLUOROURACIL [Concomitant]
     Active Substance: FLUOROURACIL
     Dosage: AS A PART OF FOLFOX PRIOR THERAPY
     Route: 065
     Dates: start: 20170302, end: 20170330
  4. CAPECITABINE. [Suspect]
     Active Substance: CAPECITABINE
     Indication: COLORECTAL CANCER METASTATIC
     Dosage: ON DAYS 1-14
     Route: 048
     Dates: start: 20171108
  5. FOLINIC ACID [Concomitant]
     Active Substance: LEUCOVORIN
     Dosage: AS A PART OF FOLFOX PRIOR THERAPY
     Route: 065
     Dates: start: 20170302, end: 20170330
  6. FOLINIC ACID [Concomitant]
     Active Substance: LEUCOVORIN
     Dosage: AS A PART OF FOLFIRI PRIOR THERAPY
     Route: 065
     Dates: start: 20170427, end: 20170929
  7. 5-FLUOROURACIL [Concomitant]
     Active Substance: FLUOROURACIL
     Dosage: AS A PART OF FOLFIRI PRIOR THERAPY
     Route: 065
     Dates: start: 20170427, end: 20170929
  8. BLINDED ATEZOLIZUMAB [Suspect]
     Active Substance: ATEZOLIZUMAB
     Indication: COLORECTAL CANCER METASTATIC
     Dosage: OVER 60 MINUTES ON DAY 1
     Route: 042
     Dates: start: 20171108

REACTIONS (2)
  - Blood alkaline phosphatase increased [Unknown]
  - Aspartate aminotransferase increased [Unknown]

NARRATIVE: CASE EVENT DATE: 20171108
